FAERS Safety Report 14597460 (Version 1)
Quarter: 2018Q1

REPORT INFORMATION
  Report Type: Spontaneous
  Country: FR (occurrence: FR)
  Receive Date: 20180305
  Receipt Date: 20180305
  Transmission Date: 20180509
  Serious: Yes (Disabling)
  Sender: FDA-Public Use
  Company Number: FR-MERCK KGAA-2042945

PATIENT
  Age: 44 Year
  Sex: Female
  Weight: 48 kg

DRUGS (1)
  1. NOVOTHYROX [Suspect]
     Active Substance: LEVOTHYROXINE SODIUM
     Indication: THYROIDECTOMY
     Route: 048
     Dates: start: 20170615, end: 20170930

REACTIONS (7)
  - Gait disturbance [Unknown]
  - Fatigue [Unknown]
  - Arthralgia [Unknown]
  - Gout [Unknown]
  - Muscle spasms [Unknown]
  - Blood pressure decreased [Unknown]
  - Diffuse alopecia [Unknown]

NARRATIVE: CASE EVENT DATE: 20170715
